FAERS Safety Report 5674537-1 (Version None)
Quarter: 2008Q1

REPORT INFORMATION
  Report Type: 
  Country: None (occurrence: None)
  Receive Date: 20080320
  Receipt Date: 20080311
  Transmission Date: 20080703
  Serious: Yes (Hospitalization)
  Sender: FDA-Public Use
  Company Number: US-KINGPHARMUSA00001-K200800300

PATIENT

DRUGS (9)
  1. ALTACE [Suspect]
     Indication: NEPHROTIC SYNDROME
     Dosage: 2.5 MG, QD
     Route: 048
     Dates: start: 20080108, end: 20080109
  2. ALTACE [Suspect]
     Dosage: 2.5 MG, QD
     Route: 048
     Dates: start: 20080111, end: 20080113
  3. ALTACE [Suspect]
     Dosage: 2.5 MG, QD
     Route: 048
     Dates: start: 20080116, end: 20080124
  4. INDERAL   /00030001/ [Concomitant]
     Dosage: 40 MG, QD
     Route: 048
  5. KANRENOL [Concomitant]
     Dosage: 100 MG, QD
     Route: 048
  6. LOSEC  /00661201/ [Concomitant]
     Dosage: 20 MG, UNK
     Route: 048
  7. LORTAAN [Concomitant]
     Indication: NEPHROTIC SYNDROME
     Dosage: 50 MG, QD
     Route: 048
     Dates: start: 20071101, end: 20080109
  8. PORTOLAC [Concomitant]
     Route: 048
  9. LASIX [Concomitant]
     Dosage: 100 MG, QD
     Route: 048

REACTIONS (3)
  - AMMONIA INCREASED [None]
  - COMA [None]
  - HEPATIC ENCEPHALOPATHY [None]
